FAERS Safety Report 6792639-3 (Version None)
Quarter: 2010Q2

REPORT INFORMATION
  Report Type: 
  Country: None (occurrence: None)
  Receive Date: 20100624
  Receipt Date: 20080829
  Transmission Date: 20101027
  Serious: Yes (Other)
  Sender: FDA-Public Use
  Company Number: US-PFIZER INC-2008066160

PATIENT
  Sex: Male
  Weight: 84 kg

DRUGS (10)
  1. SUTENT [Suspect]
     Indication: RENAL CELL CARCINOMA
     Dosage: QD EVERY DAY
     Dates: start: 20080721
  2. ACETYLSALICYLIC ACID [Concomitant]
     Dosage: EVERY DAY
  3. FOSAMAX [Concomitant]
     Dosage: WEEKLY
  4. HYDROCODONE [Concomitant]
     Dosage: 1 EVERY 4 HOURS AS NEEDED
  5. COMPAZINE [Concomitant]
     Dosage: EVERY 6 HOURS AS NEEDED
  6. LISINOPRIL [Concomitant]
     Dosage: EVERY DAY
  7. GLIPIZIDE [Concomitant]
     Dosage: EVERY DAY
  8. NEXIUM [Concomitant]
  9. PREDNISONE [Concomitant]
     Dosage: 3 TIMES PER DAY
  10. SIMVASTATIN [Concomitant]
     Dosage: EVERY DAY

REACTIONS (2)
  - BLOOD BILIRUBIN INCREASED [None]
  - TRANSAMINASES INCREASED [None]
